FAERS Safety Report 4582841-3 (Version None)
Quarter: 2005Q1

REPORT INFORMATION
  Report Type: 
  Country: None (occurrence: None)
  Receive Date: 20050215
  Receipt Date: 20050207
  Transmission Date: 20050727
  Serious: Yes (Other)
  Sender: FDA-Public Use
  Company Number: CA-ROCHE-394769

PATIENT
  Age: 35 Year
  Sex: Male

DRUGS (1)
  1. TORADOL [Suspect]
     Indication: BACK PAIN
     Route: 048
     Dates: start: 20050202, end: 20050202

REACTIONS (5)
  - DRUG INEFFECTIVE [None]
  - EYE SWELLING [None]
  - RASH [None]
  - SWELLING FACE [None]
  - SWOLLEN TONGUE [None]
